FAERS Safety Report 4764833-4 (Version None)
Quarter: 2005Q3

REPORT INFORMATION
  Report Type: 
  Country: None (occurrence: None)
  Receive Date: 20050909
  Receipt Date: 20050823
  Transmission Date: 20060218
  Serious: Yes (Death, Life-Threatening, Hospitalization, Disabling, Other)
  Sender: FDA-Public Use
  Company Number: US-MERCK-0508USA03767

PATIENT
  Age: 80 Year
  Sex: Female

DRUGS (5)
  1. CANCIDAS [Suspect]
     Indication: CANDIDURIA
     Route: 042
     Dates: start: 20050801, end: 20050801
  2. DIFLUCAN [Concomitant]
     Indication: CANDIDURIA
     Route: 065
  3. AMPHOTERICIN B [Concomitant]
     Indication: BLADDER IRRIGATION
     Route: 065
  4. AMPHOTERICIN B [Concomitant]
     Indication: CANDIDURIA
     Route: 065
  5. ANTIMICROBIAL (UNSPECIFIED) [Concomitant]
     Route: 065

REACTIONS (2)
  - DEATH [None]
  - PYREXIA [None]
